FAERS Safety Report 4384005-5 (Version None)
Quarter: 2004Q2

REPORT INFORMATION
  Report Type: 
  Country: None (occurrence: None)
  Receive Date: 20040624
  Receipt Date: 20040513
  Transmission Date: 20050107
  Serious: Yes (Hospitalization)
  Sender: FDA-Public Use
  Company Number: 200411537EU

PATIENT
  Age: 61 Year
  Sex: Female
  Weight: 77 kg

DRUGS (10)
  1. TAXOTERE [Suspect]
     Indication: BREAST CANCER
     Route: 042
     Dates: start: 20040505, end: 20040505
  2. HERCEPTIN [Suspect]
     Indication: BREAST CANCER
     Route: 042
     Dates: start: 20040414
  3. DEXAMETHASONE [Concomitant]
     Indication: PREMEDICATION
     Route: 042
     Dates: start: 20040505, end: 20040506
  4. VERGENTAN [Concomitant]
     Indication: PREMEDICATION
     Route: 042
     Dates: start: 20040505, end: 20040505
  5. ZOFRAN [Concomitant]
     Indication: PREMEDICATION
     Route: 042
     Dates: start: 20040505, end: 20040506
  6. BETAMETHASON [Concomitant]
     Indication: PREMEDICATION
     Route: 048
     Dates: start: 20040505, end: 20040506
  7. IMODIUM ^JANSSEN^ [Concomitant]
     Indication: DIARRHOEA
     Route: 048
     Dates: start: 20040422
  8. ONDANSETRON [Concomitant]
     Indication: NAUSEA
     Route: 048
     Dates: start: 20040415
  9. NOVALGIN [Concomitant]
     Route: 048
     Dates: start: 20040419
  10. NEUROCIL [Concomitant]
     Indication: BONE PAIN
     Route: 048
     Dates: start: 20040511

REACTIONS (4)
  - ANKLE FRACTURE [None]
  - DIZZINESS [None]
  - FALL [None]
  - POLYNEUROPATHY [None]
